FAERS Safety Report 24136183 (Version 1)
Quarter: 2024Q3

REPORT INFORMATION
  Report Type: Spontaneous
  Country: BR (occurrence: BR)
  Receive Date: 20240725
  Receipt Date: 20240725
  Transmission Date: 20241017
  Serious: Yes (Hospitalization, Other)
  Sender: PFIZER
  Company Number: BR-PFIZER INC-PV202400082829

PATIENT
  Age: 87 Year
  Sex: Male
  Weight: 65 kg

DRUGS (8)
  1. BOSULIF [Suspect]
     Active Substance: BOSUTINIB MONOHYDRATE
     Indication: Chronic myeloid leukaemia
     Dosage: 400 MG, DAILY
     Route: 048
     Dates: start: 202309, end: 20240616
  2. DIOVAN HCT [Concomitant]
     Active Substance: HYDROCHLOROTHIAZIDE\VALSARTAN
     Indication: Blood pressure measurement
     Dosage: 1 DF, DAILY
  3. KEPPRA [Concomitant]
     Active Substance: LEVETIRACETAM
     Indication: Seizure
     Dosage: 2 DF, DAILY
  4. PROPAFENONE HYDROCHLORIDE [Concomitant]
     Active Substance: PROPAFENONE HYDROCHLORIDE
     Indication: Cardiac disorder
     Dosage: 300 MG, DAILY
  5. MIRTAZAPINE [Concomitant]
     Active Substance: MIRTAZAPINE
     Indication: Depression
     Dosage: 1 DF, DAILY
  6. VURTUOSO [Concomitant]
  7. AMLODIPINE BESYLATE [Concomitant]
     Active Substance: AMLODIPINE BESYLATE
  8. SEROQUET [Concomitant]

REACTIONS (10)
  - Renal impairment [Recovered/Resolved]
  - Pleural effusion [Recovered/Resolved]
  - Aspiration [Unknown]
  - Lipase increased [Recovered/Resolved]
  - Pain [Recovered/Resolved]
  - Abdominal distension [Recovered/Resolved]
  - Blood creatinine increased [Recovered/Resolved]
  - Gamma-glutamyltransferase increased [Not Recovered/Not Resolved]
  - Blood alkaline phosphatase increased [Not Recovered/Not Resolved]
  - Diarrhoea [Unknown]

NARRATIVE: CASE EVENT DATE: 20240401
